FAERS Safety Report 9253246 (Version 1)
Quarter: 2013Q2

REPORT INFORMATION
  Report Type: Spontaneous
  Country: FR (occurrence: FR)
  Receive Date: 20130424
  Receipt Date: 20130424
  Transmission Date: 20140414
  Serious: Yes (Hospitalization)
  Sender: FDA-Public Use
  Company Number: FR-PFIZER INC-2013124376

PATIENT
  Age: 69 Year
  Sex: Male

DRUGS (11)
  1. TAHOR [Suspect]
     Dosage: UNK
     Route: 048
     Dates: start: 2008
  2. BISOPROLOL FUMARATE [Suspect]
     Dosage: UNK
     Route: 048
     Dates: start: 2010
  3. TAREG [Suspect]
     Dosage: UNK
     Route: 048
  4. ASPEGIC [Concomitant]
     Dosage: UNK
     Dates: start: 2009
  5. MOLSIDOMINE [Concomitant]
     Dosage: UNK
  6. ISOPTIN [Concomitant]
     Dosage: UNK
  7. LANTUS [Concomitant]
     Dosage: UNK
  8. INEXIUM [Concomitant]
     Dosage: UNK
  9. IMODIUM [Concomitant]
     Dosage: UNK
  10. CREON [Concomitant]
     Dosage: UNK
  11. DOLIPRANE [Concomitant]
     Dosage: UNK

REACTIONS (1)
  - Interstitial lung disease [Not Recovered/Not Resolved]
